FAERS Safety Report 6494570-X (Version None)
Quarter: 2009Q4

REPORT INFORMATION
  Report Type: 
  Country: None (occurrence: None)
  Receive Date: 20091214
  Receipt Date: 20090303
  Transmission Date: 20100525
  Serious: No
  Sender: FDA-Public Use
  Company Number: US-BRISTOL-MYERS SQUIBB COMPANY-14529853

PATIENT
  Sex: Female

DRUGS (4)
  1. ABILIFY [Suspect]
     Route: 048
  2. PROZAC [Interacting]
  3. CELEXA [Interacting]
  4. WELLBUTRIN [Interacting]

REACTIONS (2)
  - DRUG INTERACTION [None]
  - MEMORY IMPAIRMENT [None]
